FAERS Safety Report 25307619 (Version 3)
Quarter: 2025Q2

REPORT INFORMATION
  Report Type: Spontaneous
  Country: DE (occurrence: DE)
  Receive Date: 20250513
  Receipt Date: 20250603
  Transmission Date: 20250716
  Serious: Yes (Death, Hospitalization, Other)
  Sender: PFIZER
  Company Number: None

PATIENT
  Age: 83 Year
  Sex: Female
  Weight: 80 kg

DRUGS (1)
  1. METHOTREXATE SODIUM [Suspect]
     Active Substance: METHOTREXATE SODIUM
     Indication: Rheumatic disorder
     Dosage: PRESCRIBED ONCE A WEEK, POSSIBLY OVERDOSED (DAILY)
     Route: 048
     Dates: start: 202402, end: 20250408

REACTIONS (9)
  - Oral candidiasis [Fatal]
  - Immune system disorder [Fatal]
  - Circulatory collapse [Unknown]
  - Overdose [Fatal]
  - Dysphagia [Unknown]
  - Oropharyngeal pain [Unknown]
  - Stomatitis [Unknown]
  - Hypophagia [Unknown]
  - Fluid intake reduced [Unknown]

NARRATIVE: CASE EVENT DATE: 20250101
